FAERS Safety Report 14016237 (Version 2)
Quarter: 2020Q3

REPORT INFORMATION
  Report Type: Report from Study
  Country: US (occurrence: US)
  Receive Date: 20170927
  Receipt Date: 20200825
  Transmission Date: 20201102
  Serious: No
  Sender: FDA-Public Use
  Company Number: US-SA-2016SA198367

PATIENT
  Age: 50 Year
  Sex: Male

DRUGS (4)
  1. ALEMTUZUMAB [Suspect]
     Active Substance: ALEMTUZUMAB
     Dosage: 12 MG
     Route: 041
     Dates: start: 20151019, end: 20151020
  2. ALEMTUZUMAB [Suspect]
     Active Substance: ALEMTUZUMAB
     Indication: MULTIPLE SCLEROSIS
     Dosage: 12 MG, QD
     Route: 041
     Dates: start: 20161017, end: 20161019
  3. ALEMTUZUMAB [Suspect]
     Active Substance: ALEMTUZUMAB
     Dosage: 12 MG
     Route: 041
     Dates: start: 20151013, end: 20151015
  4. LISINOPRIL. [Concomitant]
     Active Substance: LISINOPRIL
     Dosage: UNK

REACTIONS (3)
  - Arthralgia [Unknown]
  - Joint swelling [Unknown]
  - Off label use [Unknown]

NARRATIVE: CASE EVENT DATE: 201610
